FAERS Safety Report 13274614 (Version 1)
Quarter: 2017Q1

REPORT INFORMATION
  Report Type: Spontaneous
  Country: CA (occurrence: CA)
  Receive Date: 20170227
  Receipt Date: 20170227
  Transmission Date: 20170428
  Serious: Yes (Other)
  Sender: FDA-Public Use
  Company Number: CA-GLAXOSMITHKLINE-CA2017GSK026906

PATIENT
  Age: 43 Year
  Sex: Female

DRUGS (21)
  1. MYCOPHENOLATE MOFETIL. [Suspect]
     Active Substance: MYCOPHENOLATE MOFETIL
     Indication: PRODUCT USED FOR UNKNOWN INDICATION
     Dosage: 5 MG, UNK
     Route: 048
  2. SENSIPAR [Concomitant]
     Active Substance: CINACALCET HYDROCHLORIDE
  3. TIAZAC [Concomitant]
     Active Substance: DILTIAZEM HYDROCHLORIDE
  4. ACTONEL [Concomitant]
     Active Substance: RISEDRONATE SODIUM
  5. LIPITOR [Concomitant]
     Active Substance: ATORVASTATIN CALCIUM
  6. VOLTAREN [Suspect]
     Active Substance: DICLOFENAC SODIUM
     Indication: PRODUCT USED FOR UNKNOWN INDICATION
     Dosage: 100 MG, QD
     Route: 048
  7. IMODIUM [Concomitant]
     Active Substance: LOPERAMIDE HYDROCHLORIDE
  8. KAYEXALATE [Concomitant]
     Active Substance: SODIUM POLYSTYRENE SULFONATE
  9. SOLIRIS [Concomitant]
     Active Substance: ECULIZUMAB
  10. TYLENOL [Concomitant]
     Active Substance: ACETAMINOPHEN
  11. VESICARE [Concomitant]
     Active Substance: SOLIFENACIN SUCCINATE
  12. ASA [Concomitant]
     Active Substance: ASPIRIN
  13. GRAVOL [Concomitant]
     Active Substance: DIMENHYDRINATE
  14. FLUTICASONE PROPIONATE. [Concomitant]
     Active Substance: FLUTICASONE PROPIONATE
  15. PREDNISONE. [Concomitant]
     Active Substance: PREDNISONE
  16. PROGRAF [Concomitant]
     Active Substance: TACROLIMUS\TACROLIMUS ANHYDROUS
  17. METOPROLOL. [Suspect]
     Active Substance: METOPROLOL
     Indication: HYPERTENSION
     Dosage: 37.5 MG, BID
     Route: 048
  18. AVAPRO [Concomitant]
     Active Substance: IRBESARTAN
  19. DEXILANT [Concomitant]
     Active Substance: DEXLANSOPRAZOLE
  20. FRAGMIN [Concomitant]
     Active Substance: DALTEPARIN SODIUM
  21. URISPAS [Concomitant]
     Active Substance: FLAVOXATE HYDROCHLORIDE

REACTIONS (14)
  - Arteriovenous fistula occlusion [Recovered/Resolved]
  - Muscle strain [Recovered/Resolved]
  - Limb injury [Recovered/Resolved]
  - Productive cough [Recovered/Resolved]
  - Tachycardia [Recovered/Resolved]
  - Oropharyngeal pain [Recovered/Resolved]
  - Blue toe syndrome [Unknown]
  - Rhinorrhoea [Recovered/Resolved]
  - Peripheral swelling [Recovered/Resolved]
  - Thrombosis [Recovered/Resolved]
  - Renal pain [Recovered/Resolved]
  - Cough [Recovered/Resolved]
  - Pain in extremity [Recovered/Resolved]
  - Nasopharyngitis [Recovered/Resolved]
